FAERS Safety Report 7925137-1 (Version None)
Quarter: 2011Q4

REPORT INFORMATION
  Report Type: 
  Country: None (occurrence: None)
  Receive Date: 20111118
  Receipt Date: 20110401
  Transmission Date: 20120403
  Serious: No
  Sender: FDA-Public Use
  Company Number: US-AMGEN-USASP2011017522

PATIENT
  Age: 55 Year
  Sex: Female

DRUGS (9)
  1. TYLENOL-500 [Concomitant]
     Dosage: 650 MG, UNK
  2. METHOTREXATE                       /00113801/ [Concomitant]
     Dosage: 2.5 MG, UNK
  3. LISINOPRIL [Concomitant]
     Dosage: 2.5 MG, UNK
  4. SIMVASTATIN [Concomitant]
     Dosage: 5 MG, UNK
  5. SALSALATE [Concomitant]
     Dosage: 500 MG, UNK
  6. LEUCOVORIN CALCIUM [Concomitant]
     Dosage: 200 MG, UNK
  7. GLYBURIDE [Concomitant]
     Dosage: 2.5 MG, UNK
  8. METFORMIN HCL [Concomitant]
     Dosage: 500 MG, UNK
  9. ENBREL [Suspect]
     Indication: PRODUCT USED FOR UNKNOWN INDICATION
     Dosage: 25 MG, 2 TIMES/WK
     Route: 058

REACTIONS (2)
  - ORAL HERPES [None]
  - RASH [None]
